FAERS Safety Report 21187663 (Version 3)
Quarter: 2022Q4

REPORT INFORMATION
  Report Type: Report from Study
  Country: US (occurrence: US)
  Receive Date: 20220808
  Receipt Date: 20221013
  Transmission Date: 20230112
  Serious: Yes (Other)
  Sender: FDA-Public Use
  Company Number: US-BIOGEN-2022BI01144474

PATIENT
  Sex: Male

DRUGS (1)
  1. TYSABRI [Suspect]
     Active Substance: NATALIZUMAB
     Indication: Multiple sclerosis
     Route: 050
     Dates: start: 20220407

REACTIONS (5)
  - Diabetes mellitus [Unknown]
  - Balance disorder [Unknown]
  - Fall [Recovered/Resolved]
  - Central nervous system lesion [Unknown]
  - Memory impairment [Unknown]
